FAERS Safety Report 6100703-7 (Version None)
Quarter: 2009Q1

REPORT INFORMATION
  Report Type: 
  Country: None (occurrence: None)
  Receive Date: 20090303
  Receipt Date: 20090303
  Transmission Date: 20090719
  Serious: Yes (Hospitalization, Other)
  Sender: FDA-Public Use
  Company Number: PHHO2004US16318

PATIENT
  Sex: Female
  Weight: 46.8 kg

DRUGS (4)
  1. LOTREL T29524+CAPS [Suspect]
     Indication: HYPERTENSION
     Dosage: LEVEL 1
     Route: 048
     Dates: start: 20040419, end: 20041114
  2. ASPIRIN [Concomitant]
  3. CRESTOR [Concomitant]
  4. PREDNISONE [Concomitant]

REACTIONS (8)
  - ANGINA UNSTABLE [None]
  - ATRIAL TACHYCARDIA [None]
  - CHEST PAIN [None]
  - CONCOMITANT DISEASE PROGRESSION [None]
  - CORONARY ARTERY DISEASE [None]
  - LOSS OF CONSCIOUSNESS [None]
  - ORTHOSTATIC HYPOTENSION [None]
  - SYNCOPE [None]
